FAERS Safety Report 22075711 (Version 6)
Quarter: 2023Q2

REPORT INFORMATION
  Report Type: Report from Study
  Country: JP (occurrence: JP)
  Receive Date: 20230308
  Receipt Date: 20230405
  Transmission Date: 20230721
  Serious: Yes (Life-Threatening, Hospitalization, Disabling, Other)
  Sender: FDA-Public Use
  Company Number: JP-JNJFOC-20230238561

PATIENT
  Age: 78 Year
  Sex: Female
  Weight: 33 kg

DRUGS (11)
  1. AMIVANTAMAB [Suspect]
     Active Substance: AMIVANTAMAB
     Indication: Non-small cell lung cancer
     Dosage: 7 ML VIAL?BATCH NUMBERS FOR NEW EVENT PULMONARY INFARCTION REPORTED IN REVERSE (301247 FOR AMIVANTAM
     Route: 042
     Dates: start: 20221108, end: 20230202
  2. SODIUM GUALENATE MONOHYDRATE [Concomitant]
     Active Substance: SODIUM GUALENATE MONOHYDRATE
     Indication: Infection prophylaxis
     Route: 061
     Dates: start: 20170724
  3. NEXIUM [Concomitant]
     Active Substance: ESOMEPRAZOLE MAGNESIUM
     Indication: Gastrointestinal disorder therapy
     Route: 048
     Dates: start: 20200924
  4. ANAMORELIN HYDROCHLORIDE [Concomitant]
     Active Substance: ANAMORELIN HYDROCHLORIDE
     Indication: Prophylaxis
     Route: 048
     Dates: start: 20210921
  5. LINAGLIPTIN [Concomitant]
     Active Substance: LINAGLIPTIN
     Indication: Diabetes mellitus
     Route: 048
     Dates: start: 20211207
  6. GATIFLOXACIN [Concomitant]
     Active Substance: GATIFLOXACIN
     Indication: Conjunctivitis
     Dosage: DOSE 1 (UNIT NOT SPECIFIED)
     Route: 047
     Dates: start: 20221207
  7. GLYCOSAMINOGLYCANS [Concomitant]
     Active Substance: GLYCOSAMINOGLYCANS
     Indication: Prophylaxis
     Dosage: DOSE 5 (UNITS NOT SPECIFIED)
     Route: 062
     Dates: start: 20221207
  8. CEFMENOXIME HYDROCHLORIDE [Concomitant]
     Active Substance: CEFMENOXIME HYDROCHLORIDE
     Indication: Conjunctivitis
     Dosage: DOSE 2 (UNITS NOT SPECIFIED)
     Route: 047
     Dates: start: 20221220
  9. PETROLATUM [Concomitant]
     Active Substance: PETROLATUM
     Indication: Dermatitis
     Route: 061
     Dates: start: 20230105
  10. POTASSIUM ASPARTATE [Concomitant]
     Active Substance: POTASSIUM ASPARTATE
     Indication: Hypokalaemia
     Route: 048
     Dates: start: 20230105
  11. NAUZELIN [Concomitant]
     Active Substance: DOMPERIDONE
     Indication: Nausea
     Route: 048
     Dates: start: 20230105

REACTIONS (3)
  - Syncope [Recovered/Resolved]
  - Pulmonary infarction [Recovering/Resolving]
  - Hypokalaemia [Recovered/Resolved]

NARRATIVE: CASE EVENT DATE: 20230216
